FAERS Safety Report 20202289 (Version 7)
Quarter: 2022Q3

REPORT INFORMATION
  Report Type: Report from Study
  Country: US (occurrence: US)
  Receive Date: 20211217
  Receipt Date: 20220623
  Transmission Date: 20221026
  Serious: Yes (Other)
  Sender: FDA-Public Use
  Company Number: US-NOVARTISTESTPH-NVSC2021US290304

PATIENT
  Sex: Female

DRUGS (3)
  1. COSENTYX [Suspect]
     Active Substance: SECUKINUMAB
     Indication: Psoriasis
     Dosage: UNK
     Route: 065
  2. COSENTYX [Suspect]
     Active Substance: SECUKINUMAB
     Dosage: 300 MG, QMO
     Route: 058
  3. COSENTYX [Suspect]
     Active Substance: SECUKINUMAB
     Dosage: UNK
     Route: 065
     Dates: start: 20211206

REACTIONS (10)
  - Diverticulitis [Unknown]
  - Ulcer haemorrhage [Unknown]
  - Rectal haemorrhage [Unknown]
  - Rectal ulcer haemorrhage [Unknown]
  - Memory impairment [Unknown]
  - Productive cough [Unknown]
  - Gastrointestinal polyp [Unknown]
  - Secretion discharge [Unknown]
  - Gastrointestinal disorder [Unknown]
  - Gastrointestinal ulcer [Unknown]
